FAERS Safety Report 6162058-1 (Version None)
Quarter: 2009Q2

REPORT INFORMATION
  Report Type: 
  Country: None (occurrence: None)
  Receive Date: 20090421
  Receipt Date: 20090410
  Transmission Date: 20091009
  Serious: Yes (Death)
  Sender: FDA-Public Use
  Company Number: JP-AVENTIS-200911014JP

PATIENT
  Age: 79 Year
  Sex: Male
  Weight: 56.2 kg

DRUGS (18)
  1. DOCETAXEL HYDRATE [Suspect]
     Route: 041
     Dates: start: 20071026, end: 20071026
  2. PREDNISOLONE [Suspect]
     Indication: PREMEDICATION
     Dosage: DOSE: 2 TABLETS
     Route: 048
     Dates: start: 20071001
  3. PREDNISOLONE [Concomitant]
     Route: 048
  4. ZOLADEX [Concomitant]
     Dates: start: 20060719
  5. ODYNE [Concomitant]
     Dosage: DOSE: 3 TABLETS
     Route: 048
     Dates: start: 20070606
  6. URSO                               /00465701/ [Concomitant]
     Dosage: DOSE: 3 TABLETS
     Route: 048
     Dates: start: 20070814, end: 20071011
  7. STRONG NEO-MINOPHAGEN C [Concomitant]
     Dosage: DOSE: 1 AMPLE
     Dates: start: 20070803, end: 20070813
  8. MORPHINE HYDROCHLORIDE [Concomitant]
     Dates: start: 20070821
  9. NOVAMIN                            /00013301/ [Concomitant]
     Dosage: DOSE: 3 TABLETS
     Dates: start: 20070823
  10. OPSO [Concomitant]
     Dates: start: 20070826, end: 20070826
  11. PRIMPERAN                          /00041901/ [Concomitant]
     Dosage: DOSE: 3 TABLETS
     Route: 048
     Dates: start: 20070829
  12. MAGMITT [Concomitant]
     Dosage: DOSE: 6 TABLETS
     Route: 048
     Dates: start: 20070912
  13. LOPEMIN [Concomitant]
     Dosage: DOSE: 1  CAPSULE
     Route: 048
     Dates: start: 20071007
  14. GASTER [Concomitant]
     Route: 048
     Dates: start: 20071015
  15. GRAN [Concomitant]
     Dates: start: 20071009, end: 20071011
  16. GRAN [Concomitant]
     Dates: start: 20071031, end: 20071031
  17. TIPEPIDINE HIBENZATE [Concomitant]
     Dates: start: 20071026, end: 20071026
  18. MUCOSTA [Concomitant]
     Dosage: DOSE: 3 TABLETS
     Route: 048
     Dates: start: 20071105

REACTIONS (2)
  - INTERSTITIAL LUNG DISEASE [None]
  - PNEUMOCYSTIS JIROVECI PNEUMONIA [None]
